FAERS Safety Report 10656215 (Version 2)
Quarter: 2015Q3

REPORT INFORMATION
  Report Type: Spontaneous
  Country: US (occurrence: US)
  Receive Date: 20141216
  Receipt Date: 20150817
  Transmission Date: 20151125
  Serious: No
  Sender: FDA-Public Use
  Company Number: US-CELGENEUS-USA-2014101946

PATIENT
  Sex: Female

DRUGS (7)
  1. THALOMID [Suspect]
     Active Substance: THALIDOMIDE
     Route: 048
     Dates: start: 201202
  2. THALOMID [Suspect]
     Active Substance: THALIDOMIDE
     Route: 048
     Dates: start: 201304
  3. THALOMID [Suspect]
     Active Substance: THALIDOMIDE
     Route: 048
     Dates: start: 201210
  4. THALOMID [Suspect]
     Active Substance: THALIDOMIDE
     Route: 048
     Dates: start: 201402
  5. THALOMID [Suspect]
     Active Substance: THALIDOMIDE
     Route: 048
     Dates: start: 2014
  6. THALOMID [Suspect]
     Active Substance: THALIDOMIDE
     Route: 048
     Dates: start: 201310
  7. THALOMID [Suspect]
     Active Substance: THALIDOMIDE
     Indication: ERYTHEMA NODOSUM
     Route: 048
     Dates: start: 201110

REACTIONS (1)
  - Skin lesion [Unknown]
